FAERS Safety Report 5798673-4 (Version None)
Quarter: 2008Q3

REPORT INFORMATION
  Report Type: 
  Country: None (occurrence: None)
  Receive Date: 20080702
  Receipt Date: 20080623
  Transmission Date: 20090109
  Serious: Yes (Hospitalization, Other)
  Sender: FDA-Public Use
  Company Number: US-ELI_LILLY_AND_COMPANY-US200804005879

PATIENT
  Sex: Female

DRUGS (5)
  1. FORTEO [Suspect]
     Dates: start: 20030801, end: 20050801
  2. FORTEO [Suspect]
     Dates: start: 20080615
  3. HUMALOG [Concomitant]
     Dosage: UNK, UNK
  4. HUMALOG [Concomitant]
     Route: 058
  5. PLAVIX [Concomitant]

REACTIONS (8)
  - ARTHROPATHY [None]
  - CATARACT [None]
  - CORONARY ARTERY OCCLUSION [None]
  - DYSPNOEA EXERTIONAL [None]
  - IMPAIRED HEALING [None]
  - OSTEOPENIA [None]
  - RETINAL DISORDER [None]
  - WALKING AID USER [None]
